FAERS Safety Report 19509673 (Version 1)
Quarter: 2021Q3

REPORT INFORMATION
  Report Type: Spontaneous
  Country: US (occurrence: US)
  Receive Date: 20210709
  Receipt Date: 20210709
  Transmission Date: 20211014
  Serious: Yes (Other)
  Sender: FDA-Public Use
  Company Number: US-ROCHE-2830127

PATIENT
  Sex: Female

DRUGS (2)
  1. CAPECITABINE. [Suspect]
     Active Substance: CAPECITABINE
     Indication: BREAST CANCER FEMALE
     Route: 048
  2. TUKYSA [Suspect]
     Active Substance: TUCATINIB
     Indication: BREAST CANCER FEMALE
     Route: 065

REACTIONS (12)
  - Feeding disorder [Unknown]
  - Vomiting [Unknown]
  - Illness [Unknown]
  - Somnolence [Unknown]
  - Product dose omission in error [Unknown]
  - Pain in extremity [Unknown]
  - Rash erythematous [Unknown]
  - Femur fracture [Unknown]
  - Nausea [Unknown]
  - Paraesthesia [Unknown]
  - Fatigue [Unknown]
  - Liver function test increased [Unknown]
